FAERS Safety Report 6106388-8 (Version None)
Quarter: 2009Q1

REPORT INFORMATION
  Report Type: 
  Country: None (occurrence: None)
  Receive Date: 20090306
  Receipt Date: 20090304
  Transmission Date: 20090719
  Serious: No
  Sender: FDA-Public Use
  Company Number: US-B.I. PHARMACEUTICALS,INC./RIDGEFIELD-2009-BP-02659BP

PATIENT
  Sex: Male

DRUGS (7)
  1. SPIRIVA [Suspect]
     Indication: CHRONIC OBSTRUCTIVE PULMONARY DISEASE
     Dosage: 18MCG
     Route: 055
     Dates: start: 20090303
  2. SPIRIVA [Suspect]
     Indication: EMPHYSEMA
  3. METFORMIN [Concomitant]
     Indication: DIABETES MELLITUS
     Dosage: 500MG
     Route: 048
  4. ALLEGRA [Concomitant]
     Indication: HYPERSENSITIVITY
     Dosage: 180MG
     Route: 048
  5. PAXIL [Concomitant]
     Indication: DEPRESSION
     Dosage: 40MG
     Route: 048
  6. TRAZODONE HCL [Concomitant]
     Indication: DEPRESSION
     Dosage: 75MG
     Route: 048
  7. PRAVASTATIN [Concomitant]
     Indication: BLOOD CHOLESTEROL INCREASED
     Dosage: 20MG
     Route: 048

REACTIONS (4)
  - CONFUSIONAL STATE [None]
  - HEADACHE [None]
  - MUSCLE SPASMS [None]
  - TREMOR [None]
